FAERS Safety Report 5503526-2 (Version None)
Quarter: 2007Q4

REPORT INFORMATION
  Report Type: 
  Country: None (occurrence: None)
  Receive Date: 20071029
  Receipt Date: 20071011
  Transmission Date: 20080405
  Serious: Yes (Other)
  Sender: FDA-Public Use
  Company Number: 8027000

PATIENT
  Age: 27 Year
  Sex: Female

DRUGS (16)
  1. KEPPRA [Suspect]
     Indication: CONVULSION
     Dosage: 500 MG 2/D PO
     Route: 048
     Dates: end: 20070530
  2. KEPPRA [Suspect]
     Indication: CONVULSION
     Dosage: 1000 MG 2/D PO
     Route: 048
     Dates: start: 20070530, end: 20070614
  3. KEPPRA [Suspect]
     Indication: CONVULSION
     Dosage: 1500 MG 2/D PO
     Route: 048
     Dates: start: 20070614, end: 20070815
  4. KEPPRA [Suspect]
     Indication: CONVULSION
     Dosage: 3000 MG 2/D PO
     Route: 048
     Dates: start: 20070815, end: 20070905
  5. KEPPRA [Suspect]
     Indication: CONVULSION
     Dosage: 3500 MG 2/D PO
     Route: 048
     Dates: start: 20070905, end: 20070924
  6. KEPPRA [Suspect]
     Indication: CONVULSION
     Dosage: 5000 MG 2/D PO
     Route: 048
     Dates: start: 20070924
  7. SEROQUEL [Concomitant]
  8. TOPAMAX [Concomitant]
  9. LAMICTAL [Concomitant]
  10. ATIVAN [Concomitant]
  11. AMBEIN CR [Concomitant]
  12. ABILIFY [Concomitant]
  13. LYRICA [Concomitant]
  14. PRILOSEC [Concomitant]
  15. MAXALT-MLT [Concomitant]
  16. GEODON [Concomitant]

REACTIONS (9)
  - CONDITION AGGRAVATED [None]
  - CONFUSIONAL STATE [None]
  - CONVULSION [None]
  - HEADACHE [None]
  - INCORRECT DOSE ADMINISTERED [None]
  - METRORRHAGIA [None]
  - PHARMACEUTICAL PRODUCT COMPLAINT [None]
  - UNDERDOSE [None]
  - URINARY TRACT INFECTION [None]
